FAERS Safety Report 24151082 (Version 1)
Quarter: 2024Q3

REPORT INFORMATION
  Report Type: Spontaneous
  Country: FR (occurrence: FR)
  Receive Date: 20240730
  Receipt Date: 20240730
  Transmission Date: 20241017
  Serious: Yes (Other)
  Sender: RANBAXY
  Company Number: FR-AFSSAPS-LL2024000846

PATIENT
  Age: 64 Year
  Sex: Female

DRUGS (3)
  1. QUETIAPINE [Suspect]
     Active Substance: QUETIAPINE
     Indication: Bipolar disorder
     Dosage: THE EVENING
     Route: 048
     Dates: start: 20240119
  2. TERALITHE [Suspect]
     Active Substance: LITHIUM CARBONATE
     Indication: Bipolar disorder
     Dosage: 1.5 CP IN THE EVENING
     Route: 048
     Dates: start: 20240119
  3. CYAMEMAZINE [Suspect]
     Active Substance: CYAMEMAZINE
     Indication: Brief psychotic disorder, with postpartum onset
     Dosage: 1 CP AT BEDTIME
     Route: 048
     Dates: start: 20240119

REACTIONS (1)
  - Mixed liver injury [Not Recovered/Not Resolved]

NARRATIVE: CASE EVENT DATE: 20240329
